FAERS Safety Report 14393705 (Version 1)
Quarter: 2018Q1

REPORT INFORMATION
  Report Type: Spontaneous
  Country: US (occurrence: US)
  Receive Date: 20180115
  Receipt Date: 20180115
  Transmission Date: 20180509
  Serious: Yes (Other)
  Sender: FDA-Public Use
  Company Number: None

PATIENT
  Sex: Female
  Weight: 81 kg

DRUGS (4)
  1. XIIDRA [Suspect]
     Active Substance: LIFITEGRAST
     Indication: DRY EYE
     Dosage: ?          QUANTITY:60 CONTAINER;?
     Route: 047
     Dates: start: 20180112, end: 20180112
  2. SPIROLACTONE [Concomitant]
     Active Substance: SPIRONOLACTONE
  3. SYNTHROID [Concomitant]
     Active Substance: LEVOTHYROXINE SODIUM
  4. VIIBRYD [Concomitant]
     Active Substance: VILAZODONE HYDROCHLORIDE

REACTIONS (5)
  - Hypersensitivity [None]
  - Application site vesicles [None]
  - Skin irritation [None]
  - Eye swelling [None]
  - Application site pain [None]

NARRATIVE: CASE EVENT DATE: 20180113
